FAERS Safety Report 10166128 (Version 1)
Quarter: 2014Q2

REPORT INFORMATION
  Report Type: Spontaneous
  Country: US (occurrence: US)
  Receive Date: 20140512
  Receipt Date: 20140512
  Transmission Date: 20141212
  Serious: No
  Sender: FDA-Public Use
  Company Number: US-009507513-1404USA013950

PATIENT
  Age: 20 Year
  Sex: Female
  Weight: 43.99 kg

DRUGS (1)
  1. NUVARING [Suspect]
     Indication: CONTRACEPTION
     Dosage: INSERT NUVARING FOR 3 WEEKS, AND THEN AT THE END OF THE THIRD WEEK, INSERT A NEW NUVARING
     Route: 067
     Dates: start: 20140315

REACTIONS (7)
  - Breast enlargement [Unknown]
  - Breast tenderness [Unknown]
  - Drug prescribing error [Unknown]
  - Inappropriate schedule of drug administration [Unknown]
  - Fatigue [Unknown]
  - Constipation [Unknown]
  - Amenorrhoea [Unknown]
